FAERS Safety Report 6045633-4 (Version None)
Quarter: 2009Q1

REPORT INFORMATION
  Report Type: 
  Country: None (occurrence: None)
  Receive Date: 20090121
  Receipt Date: 20090115
  Transmission Date: 20090719
  Serious: Yes (Hospitalization, Congenital Anomaly)
  Sender: FDA-Public Use
  Company Number: FR-WYE-G02941209

PATIENT
  Sex: Female

DRUGS (19)
  1. TAZOCILLINE [Suspect]
     Indication: PYREXIA
     Dosage: UNKNOWN
     Route: 064
     Dates: start: 20080226, end: 20080310
  2. CERUBIDINE [Suspect]
     Dosage: UNKNOWN
     Route: 064
     Dates: start: 20080220, end: 20080222
  3. VANCOMYCIN [Suspect]
     Indication: PYREXIA
     Dosage: UNKNOWN
     Route: 064
     Dates: start: 20080227, end: 20080228
  4. PLITICAN [Suspect]
     Dosage: UNKNOWN
     Route: 064
     Dates: start: 20080328, end: 20080330
  5. SPASFON [Suspect]
     Dosage: UNKNOWN
     Route: 064
     Dates: start: 20080401, end: 20080405
  6. DEBRIDAT [Suspect]
     Dosage: UNKNOWN
     Route: 064
     Dates: start: 20080307, end: 20080308
  7. PRIMPERAN TAB [Suspect]
     Dosage: UNKNOWN
     Route: 064
     Dates: start: 20080220, end: 20080226
  8. TRAMADOL HCL [Suspect]
     Dosage: UNKNOWN
     Route: 064
     Dates: start: 20080227, end: 20080227
  9. PERFALGAN [Suspect]
     Dosage: UNKNOWN
     Route: 064
     Dates: start: 20080303, end: 20080304
  10. ECONAZOLE NITRATE [Suspect]
     Dosage: UNKNOWN
     Route: 064
     Dates: start: 20080226, end: 20080303
  11. ACUPAN [Suspect]
     Dosage: UNKNOWN
     Route: 064
     Dates: start: 20080303, end: 20080310
  12. SMECTA [Suspect]
     Dosage: UNKNOWN
     Route: 064
     Dates: start: 20080228, end: 20080307
  13. AMIKACIN [Suspect]
     Dosage: UNKNOWN
     Route: 064
     Dates: start: 20080303, end: 20080304
  14. TARGOCID [Suspect]
     Dosage: UNKNOWN
     Route: 064
     Dates: start: 20080304, end: 20080306
  15. ATARAX [Suspect]
     Dosage: UNKNOWN
     Route: 064
     Dates: start: 20080306, end: 20080306
  16. IMODIUM [Suspect]
     Dosage: UNKNOWN
     Route: 064
     Dates: start: 20080307, end: 20080308
  17. TAVANIC [Suspect]
     Dosage: UNKNOWN
     Route: 064
     Dates: start: 20080328, end: 20080414
  18. CYTARABINE [Suspect]
     Dosage: UNKNOWN
     Route: 064
     Dates: start: 20080220, end: 20080226
  19. CYTARABINE [Suspect]
     Dosage: UNKNOWN
     Route: 064
     Dates: start: 20080327, end: 20080330

REACTIONS (8)
  - ANAEMIA NEONATAL [None]
  - DRUG EXPOSURE DURING PREGNANCY [None]
  - FOETAL ARRHYTHMIA [None]
  - FOETAL GROWTH RETARDATION [None]
  - JAUNDICE NEONATAL [None]
  - NEONATAL RESPIRATORY DISTRESS SYNDROME [None]
  - PERIVENTRICULAR LEUKOMALACIA [None]
  - PREMATURE BABY [None]
